FAERS Safety Report 22607293 (Version 1)
Quarter: 2023Q2

REPORT INFORMATION
  Report Type: Spontaneous
  Country: JP (occurrence: JP)
  Receive Date: 20230615
  Receipt Date: 20230615
  Transmission Date: 20230722
  Serious: Yes (Hospitalization)
  Sender: FDA-Public Use
  Company Number: JP-BRISTOL-MYERS SQUIBB COMPANY-2023-084479

PATIENT
  Age: 9 Decade
  Sex: Male

DRUGS (1)
  1. ABRAXANE [Suspect]
     Active Substance: PACLITAXEL
     Indication: Product used for unknown indication
     Route: 041

REACTIONS (4)
  - Rash [Recovering/Resolving]
  - Decreased appetite [Recovering/Resolving]
  - Rheumatic disorder [Recovering/Resolving]
  - Neutrophil count decreased [Recovering/Resolving]
